FAERS Safety Report 6177991-4 (Version None)
Quarter: 2009Q2

REPORT INFORMATION
  Report Type: 
  Country: None (occurrence: None)
  Receive Date: 20090504
  Receipt Date: 20090424
  Transmission Date: 20091009
  Serious: Yes (Other)
  Sender: FDA-Public Use
  Company Number: ES-AMGEN-UK344200

PATIENT
  Sex: Male

DRUGS (3)
  1. CINACALCET [Suspect]
     Indication: HYPERPARATHYROIDISM SECONDARY
     Route: 048
     Dates: start: 20070201
  2. PARICALCITOL [Concomitant]
     Route: 065
     Dates: start: 20070501, end: 20080101
  3. SEVELAMER [Concomitant]
     Route: 065

REACTIONS (3)
  - CARDIAC FAILURE [None]
  - THERAPEUTIC RESPONSE DECREASED [None]
  - TREATMENT NONCOMPLIANCE [None]
